FAERS Safety Report 13872073 (Version 1)
Quarter: 2017Q3

REPORT INFORMATION
  Report Type: Spontaneous
  Country: US (occurrence: US)
  Receive Date: 20170816
  Receipt Date: 20170816
  Transmission Date: 20171127
  Serious: No
  Sender: FDA-Public Use
  Company Number: US-009507513-1708USA003417

PATIENT
  Age: 60 Year
  Sex: Male

DRUGS (4)
  1. ZOSTAVAX [Suspect]
     Active Substance: VARICELLA-ZOSTER VIRUS STRAIN OKA/MERCK LIVE ANTIGEN
     Indication: PROPHYLAXIS
     Route: 058
     Dates: start: 20170728, end: 20170728
  2. STERILE DILUENT [Suspect]
     Active Substance: WATER
     Dosage: UNK
     Route: 058
     Dates: start: 20170728, end: 20170728
  3. AFINITOR [Suspect]
     Active Substance: EVEROLIMUS
     Indication: CHEMOTHERAPY
     Dosage: UNK
     Route: 048
  4. LENVIMA [Suspect]
     Active Substance: LENVATINIB
     Indication: CHEMOTHERAPY
     Dosage: UNK
     Route: 048

REACTIONS (5)
  - Medication error [Unknown]
  - Burning sensation [Unknown]
  - Influenza like illness [Recovered/Resolved]
  - Injection site mass [Unknown]
  - Pain in extremity [Unknown]

NARRATIVE: CASE EVENT DATE: 20170728
